FAERS Safety Report 9412037 (Version 1)
Quarter: 2013Q3

REPORT INFORMATION
  Report Type: Spontaneous
  Country: FR (occurrence: FR)
  Receive Date: 20130722
  Receipt Date: 20130722
  Transmission Date: 20140515
  Serious: Yes (Hospitalization)
  Sender: FDA-Public Use
  Company Number: FR-JNJFOC-20130712092

PATIENT
  Age: 85 Year
  Sex: Female

DRUGS (6)
  1. TOPALGIC [Suspect]
     Indication: PRODUCT USED FOR UNKNOWN INDICATION
     Route: 048
     Dates: start: 20130503, end: 20130518
  2. COUMADINE [Suspect]
     Indication: DEEP VEIN THROMBOSIS
     Route: 048
     Dates: start: 20130511, end: 20130516
  3. COUMADINE [Suspect]
     Indication: DEEP VEIN THROMBOSIS
     Route: 048
     Dates: start: 20130510, end: 20130510
  4. COUMADINE [Suspect]
     Indication: DEEP VEIN THROMBOSIS
     Route: 048
     Dates: start: 20130507, end: 20130509
  5. AMOXICILLINE [Suspect]
     Indication: PRODUCT USED FOR UNKNOWN INDICATION
     Route: 042
     Dates: start: 20130504, end: 20130514
  6. HEPARIN (HEPARIN SODIUM) [Concomitant]
     Indication: DEEP VEIN THROMBOSIS
     Route: 065

REACTIONS (2)
  - Haematoma [Recovered/Resolved]
  - Haemarthrosis [Recovered/Resolved]
